FAERS Safety Report 7124379-5 (Version None)
Quarter: 2010Q4

REPORT INFORMATION
  Report Type: 
  Country: None (occurrence: None)
  Receive Date: 20101126
  Receipt Date: 20101123
  Transmission Date: 20110411
  Serious: Yes (Other)
  Sender: FDA-Public Use
  Company Number: CHNY2010GB00504

PATIENT

DRUGS (1)
  1. ACETAMINOPHEN [Suspect]
     Dosage: PARACETAMOL OVERDOSE
     Route: 048

REACTIONS (2)
  - OVERDOSE [None]
  - RENAL IMPAIRMENT [None]
